FAERS Safety Report 5802744-3 (Version None)
Quarter: 2008Q3

REPORT INFORMATION
  Report Type: 
  Country: None (occurrence: None)
  Receive Date: 20080703
  Receipt Date: 20080619
  Transmission Date: 20090109
  Serious: Yes (Hospitalization, Other)
  Sender: FDA-Public Use
  Company Number: A-JP2005-12108

PATIENT
  Age: 86 Year
  Sex: Female
  Weight: 47 kg

DRUGS (10)
  1. TRACLEER [Suspect]
     Indication: PULMONARY HYPERTENSION
     Dosage: 62.5 MG, BID, ORAL, 125 MG, BID, ORAL, 62.5 MG, BID, ORAL
     Route: 048
     Dates: start: 20051019, end: 20051116
  2. TRACLEER [Suspect]
     Indication: PULMONARY HYPERTENSION
     Dosage: 62.5 MG, BID, ORAL, 125 MG, BID, ORAL, 62.5 MG, BID, ORAL
     Route: 048
     Dates: start: 20051117, end: 20051208
  3. TRACLEER [Suspect]
     Indication: PULMONARY HYPERTENSION
     Dosage: 62.5 MG, BID, ORAL, 125 MG, BID, ORAL, 62.5 MG, BID, ORAL
     Route: 048
     Dates: start: 20051209, end: 20061128
  4. NIFEDIPINE [Concomitant]
  5. TOCOPHERYL NICOTINATE (TOCOPHERYL NICOTINATE) [Concomitant]
  6. ADENOSINE TRIPHOSPHATE, DISODIUM SALT (ADENOSINE TRIPHOSPHATE, DISODIU [Concomitant]
  7. CANDESARTAN (CANDESARTAN0 [Concomitant]
  8. SULFAMETHOXAZOLE AND TRIMETHOPRIM (SULFAMETHOXOAZOLE, TRIIMETHOPRIM) [Concomitant]
  9. OXYGEN (OXYGEN) [Concomitant]
  10. ETIZOLAM (ETIZOLAM) [Concomitant]

REACTIONS (10)
  - ALANINE AMINOTRANSFERASE INCREASED [None]
  - ASPARTATE AMINOTRANSFERASE INCREASED [None]
  - BLOOD ALKALINE PHOSPHATASE INCREASED [None]
  - CONDITION AGGRAVATED [None]
  - EOSINOPHIL COUNT INCREASED [None]
  - GAMMA-GLUTAMYLTRANSFERASE INCREASED [None]
  - LIVER DISORDER [None]
  - PULMONARY HYPERTENSION [None]
  - RIGHT VENTRICULAR FAILURE [None]
  - WHITE BLOOD CELL COUNT INCREASED [None]
